FAERS Safety Report 9493240 (Version 3)
Quarter: 2013Q4

REPORT INFORMATION
  Report Type: Spontaneous
  Country: JP (occurrence: JP)
  Receive Date: 20130902
  Receipt Date: 20131015
  Transmission Date: 20140711
  Serious: Yes (Hospitalization, Other)
  Sender: FDA-Public Use
  Company Number: PHHY2013JP094628

PATIENT
  Age: 67 Year
  Sex: Female

DRUGS (3)
  1. SANDOSTATIN LAR [Suspect]
     Indication: ACROMEGALY
     Dosage: UNK UKN, UNK
     Route: 030
  2. SANDOSTATIN LAR [Suspect]
     Dosage: 10 MG, UNK
     Route: 030
  3. SANDOSTATIN [Suspect]
     Indication: ACROMEGALY
     Dosage: 100 UG, DAILY
     Route: 058

REACTIONS (7)
  - Colon cancer [Unknown]
  - Intestinal obstruction [Unknown]
  - Insulin-like growth factor increased [Unknown]
  - Bowel movement irregularity [Unknown]
  - Nausea [Unknown]
  - Injection site pain [Recovered/Resolved]
  - Constipation [Unknown]
